FAERS Safety Report 10057069 (Version 1)
Quarter: 2014Q2

REPORT INFORMATION
  Report Type: Spontaneous
  Country: FR (occurrence: FR)
  Receive Date: 20140403
  Receipt Date: 20140403
  Transmission Date: 20141212
  Serious: Yes (Hospitalization)
  Sender: FDA-Public Use
  Company Number: FR-ELI_LILLY_AND_COMPANY-FR201403008790

PATIENT
  Age: 63 Year
  Sex: Female

DRUGS (12)
  1. CALTRATE                           /00751519/ [Concomitant]
     Indication: PRODUCT USED FOR UNKNOWN INDICATION
     Dosage: 600 MG, QD
     Route: 065
  2. DAFALGAN [Concomitant]
     Indication: PRODUCT USED FOR UNKNOWN INDICATION
     Dosage: 1 DF, UNKNOWN
     Route: 065
  3. IMOVANE [Concomitant]
     Indication: PRODUCT USED FOR UNKNOWN INDICATION
     Dosage: 7.5 MG, UNKNOWN
     Route: 065
  4. MACROGOL 4000 [Concomitant]
     Indication: PRODUCT USED FOR UNKNOWN INDICATION
     Dosage: 8000 DF, BID
     Route: 065
  5. ZYPREXA VELOTAB [Suspect]
     Indication: PERSONALITY DISORDER
     Dosage: 5 MG, QD
     Route: 065
     Dates: start: 20140214, end: 20140221
  6. TEGRETOL [Suspect]
     Indication: EPILEPSY
     Dosage: 600 MG, BID
     Route: 048
     Dates: start: 20130322
  7. ALEPSAL [Suspect]
     Indication: EPILEPSY
     Dosage: 50 MG, BID
     Route: 048
     Dates: start: 20130322
  8. DEPAKINE CHRONO [Suspect]
     Indication: EPILEPSY
     Dosage: 750 MG, BID
     Route: 048
     Dates: start: 20130322
  9. LARGACTIL                          /00011901/ [Suspect]
     Indication: PERSONALITY DISORDER
     Dosage: 40 MG, TID
     Route: 048
     Dates: start: 20130322, end: 20140215
  10. URBANYL [Concomitant]
     Indication: ALCOHOLISM
     Dosage: 5 MG, BID
     Route: 065
  11. TAHOR [Concomitant]
     Indication: PRODUCT USED FOR UNKNOWN INDICATION
     Dosage: 1 DF, UNKNOWN
     Route: 065
     Dates: end: 20140221
  12. INEXIUM                            /01479302/ [Concomitant]
     Indication: PRODUCT USED FOR UNKNOWN INDICATION
     Dosage: 40 MG, QD
     Route: 065

REACTIONS (8)
  - Hypokalaemia [Unknown]
  - Pneumonia [Recovered/Resolved]
  - Confusional state [Unknown]
  - Thrombocytopenia [Recovered/Resolved]
  - Leukopenia [Recovered/Resolved]
  - Febrile neutropenia [Recovered/Resolved]
  - Off label use [Recovered/Resolved]
  - Hyponatraemia [Recovered/Resolved]
